FAERS Safety Report 4557953-0 (Version None)
Quarter: 2005Q1

REPORT INFORMATION
  Report Type: 
  Country: None (occurrence: None)
  Receive Date: 20050121
  Receipt Date: 20040227
  Transmission Date: 20050727
  Serious: Yes (Other)
  Sender: FDA-Public Use
  Company Number: US-BRISTOL-MYERS SQUIBB COMPANY-12518924

PATIENT
  Age: 49 Year
  Sex: Female

DRUGS (5)
  1. SERZONE [Suspect]
     Dosage: TAKING 100 MG TWICE DAILY 19-FEB-99
     Route: 048
  2. BENADRYL [Concomitant]
  3. RISPERDAL [Concomitant]
  4. HALDOL [Concomitant]
  5. BENZTROPINE MESYLATE [Concomitant]

REACTIONS (4)
  - ALANINE AMINOTRANSFERASE INCREASED [None]
  - ASPARTATE AMINOTRANSFERASE INCREASED [None]
  - BLOOD ALKALINE PHOSPHATASE INCREASED [None]
  - GAMMA-GLUTAMYLTRANSFERASE INCREASED [None]
